FAERS Safety Report 11615012 (Version 3)
Quarter: 2017Q2

REPORT INFORMATION
  Report Type: Report from Study
  Country: None (occurrence: BR)
  Receive Date: 20151009
  Receipt Date: 20170606
  Transmission Date: 20170829
  Serious: Yes (Hospitalization, Other)
  Sender: FDA-Public Use
  Company Number: BR-ABBVIE-15K-020-1475232-00

PATIENT
  Age: 57 Year
  Sex: Female
  Weight: 72 kg

DRUGS (5)
  1. ABLOK PLUS [Concomitant]
     Active Substance: ATENOLOL\CHLORTHALIDONE
     Indication: BLOOD PRESSURE ABNORMAL
     Dosage: FORM STRENGTH: 12.5 / 50
     Route: 048
     Dates: start: 2012
  2. HUMIRA [Suspect]
     Active Substance: ADALIMUMAB
     Indication: RHEUMATOID ARTHRITIS
     Route: 058
     Dates: start: 20130310, end: 201404
  3. VIMOVO [Concomitant]
     Active Substance: ESOMEPRAZOLE MAGNESIUM\NAPROXEN
     Indication: RHEUMATOID ARTHRITIS
     Route: 048
     Dates: start: 2016
  4. PRELONE [Concomitant]
     Active Substance: PREDNISOLONE
     Indication: RHEUMATOID ARTHRITIS
     Route: 048
     Dates: start: 2016
  5. ARAVA [Concomitant]
     Active Substance: LEFLUNOMIDE
     Indication: RHEUMATOID ARTHRITIS
     Route: 048
     Dates: start: 201404, end: 201704

REACTIONS (14)
  - Arthropathy [Unknown]
  - Exostosis [Recovering/Resolving]
  - Tendonitis [Recovered/Resolved]
  - Spinal pain [Recovering/Resolving]
  - Spinal cord injury [Recovering/Resolving]
  - Tendon rupture [Recovered/Resolved]
  - Tendon disorder [Recovered/Resolved]
  - Tendon rupture [Unknown]
  - Purulent discharge [Unknown]
  - Tendon necrosis [Unknown]
  - Rash macular [Unknown]
  - Anxiety [Unknown]
  - Bacterial infection [Unknown]
  - Spinal osteoarthritis [Recovering/Resolving]

NARRATIVE: CASE EVENT DATE: 201403
